FAERS Safety Report 20627510 (Version 1)
Quarter: 2022Q1

REPORT INFORMATION
  Report Type: Spontaneous
  Country: CN (occurrence: CN)
  Receive Date: 20220323
  Receipt Date: 20220323
  Transmission Date: 20220423
  Serious: Yes (Other)
  Sender: FDA-Public Use
  Company Number: CN-ABBVIE-22K-035-4327590-00

PATIENT
  Age: 40 Year
  Sex: Male
  Weight: 80 kg

DRUGS (4)
  1. VALPROATE SODIUM [Suspect]
     Active Substance: VALPROATE SODIUM
     Indication: Epilepsy
     Route: 041
     Dates: start: 20200813, end: 20200814
  2. MEROPENEM [Suspect]
     Active Substance: MEROPENEM
     Indication: Intracranial infection
     Route: 041
     Dates: start: 20200812, end: 20200814
  3. DIAZEPAM [Concomitant]
     Active Substance: DIAZEPAM
     Indication: Product used for unknown indication
     Route: 065
     Dates: start: 20200813
  4. PHENYTOIN SODIUM [Concomitant]
     Active Substance: PHENYTOIN SODIUM
     Indication: Product used for unknown indication
     Route: 065
     Dates: start: 20200813

REACTIONS (2)
  - Drug interaction [Unknown]
  - Epilepsy [Recovering/Resolving]

NARRATIVE: CASE EVENT DATE: 20200813
